FAERS Safety Report 20232832 (Version 13)
Quarter: 2023Q1

REPORT INFORMATION
  Report Type: Spontaneous
  Country: CA (occurrence: CA)
  Receive Date: 20211227
  Receipt Date: 20230208
  Transmission Date: 20230418
  Serious: Yes (Other)
  Sender: FDA-Public Use
  Company Number: CA-PFIZER INC-2021480660

PATIENT
  Age: 41 Year
  Sex: Female

DRUGS (18)
  1. RUXIENCE [Suspect]
     Active Substance: RITUXIMAB-PVVR
     Indication: Rheumatoid arthritis
     Dosage: 1000 MG ON DAY 1 AND DAY 15
     Route: 042
     Dates: start: 20210621, end: 20210705
  2. RUXIENCE [Suspect]
     Active Substance: RITUXIMAB-PVVR
     Dosage: 1000 MG ON DAY 1 AND DAY 15
     Route: 042
     Dates: start: 20210705
  3. RUXIENCE [Suspect]
     Active Substance: RITUXIMAB-PVVR
     Dosage: 1000 MG DAY 1 AND DAY 15-RETREATMENT
     Route: 042
     Dates: start: 20220203, end: 20220217
  4. RUXIENCE [Suspect]
     Active Substance: RITUXIMAB-PVVR
     Dosage: 1000 MG DAY 1 AND DAY 15-RETREATMENT
     Route: 042
     Dates: start: 20220217
  5. RUXIENCE [Suspect]
     Active Substance: RITUXIMAB-PVVR
     Dosage: 1000 MG DAY 1 AND DAY 15
     Route: 042
     Dates: start: 20220718
  6. RUXIENCE [Suspect]
     Active Substance: RITUXIMAB-PVVR
     Dosage: 1000 MG DAY 1 AND DAY 15
     Route: 042
     Dates: start: 20220718, end: 20220802
  7. RUXIENCE [Suspect]
     Active Substance: RITUXIMAB-PVVR
     Dosage: 1000 MG DAY 1 AND DAY 15
     Route: 042
     Dates: start: 20220802
  8. RUXIENCE [Suspect]
     Active Substance: RITUXIMAB-PVVR
     Dosage: 1000 MG DAY 1 AND DAY 15
     Route: 042
     Dates: start: 20230119
  9. RUXIENCE [Suspect]
     Active Substance: RITUXIMAB-PVVR
     Dosage: 1000 MG DAY 1 AND DAY 15
     Route: 042
     Dates: start: 20230202
  10. CELLCEPT [Concomitant]
     Active Substance: MYCOPHENOLATE MOFETIL
     Dosage: 1 DF
     Dates: start: 201809
  11. CELLCEPT [Concomitant]
     Active Substance: MYCOPHENOLATE MOFETIL
     Dosage: 1 DF, DOSAGE INFORMATION NOT AVAILABLE.
     Dates: start: 202009
  12. DIMENHYDRINATE [Concomitant]
     Active Substance: DIMENHYDRINATE
     Indication: Premedication
     Dosage: UNK
     Route: 042
     Dates: start: 20230119, end: 20230119
  13. ESCITALOPRAM [Concomitant]
     Active Substance: ESCITALOPRAM OXALATE
     Dosage: UNK
  14. NORTRIPTYLINE [Concomitant]
     Active Substance: NORTRIPTYLINE
     Dosage: UNK
  15. PLAQUENIL [Concomitant]
     Active Substance: HYDROXYCHLOROQUINE SULFATE
     Dosage: UNK
  16. PLAQUENIL [Concomitant]
     Active Substance: HYDROXYCHLOROQUINE SULFATE
     Dosage: 1 DF, DOSAGE NOT AVAILABLE
     Route: 065
  17. SYNTHROID [Concomitant]
     Active Substance: LEVOTHYROXINE SODIUM
     Dosage: UNK
  18. SOLU-MEDROL [Concomitant]
     Active Substance: METHYLPREDNISOLONE SODIUM SUCCINATE
     Dosage: UNK

REACTIONS (16)
  - Systemic lupus erythematosus [Unknown]
  - Condition aggravated [Unknown]
  - Therapeutic response shortened [Unknown]
  - Off label use [Unknown]
  - Intentional product use issue [Unknown]
  - Inappropriate schedule of product administration [Unknown]
  - COVID-19 [Unknown]
  - Nausea [Recovered/Resolved]
  - Headache [Recovered/Resolved]
  - Poor venous access [Unknown]
  - Joint swelling [Unknown]
  - Condition aggravated [Not Recovered/Not Resolved]
  - Nausea [Recovered/Resolved]
  - Nausea [Recovered/Resolved]
  - Nausea [Recovered/Resolved]
  - Headache [Recovered/Resolved]

NARRATIVE: CASE EVENT DATE: 20210621
